FAERS Safety Report 23306213 (Version 1)
Quarter: 2023Q4

REPORT INFORMATION
  Report Type: Spontaneous
  Country: US (occurrence: None)
  Receive Date: 20231218
  Receipt Date: 20231218
  Transmission Date: 20240109
  Serious: Yes (Other)
  Sender: FDA-Public Use
  Company Number: US-SUPERNUS Pharmaceuticals, Inc.-SUP202301-000115

PATIENT
  Age: 53 Year
  Sex: Female
  Weight: 77.11 kg

DRUGS (1)
  1. OXTELLAR XR [Suspect]
     Active Substance: OXCARBAZEPINE
     Indication: Epilepsy

REACTIONS (3)
  - Foot fracture [Unknown]
  - Seizure [Unknown]
  - Therapy interrupted [Unknown]
